FAERS Safety Report 4899572-2 (Version None)
Quarter: 2006Q1

REPORT INFORMATION
  Report Type: 
  Country: None (occurrence: None)
  Receive Date: 20060130
  Receipt Date: 20060113
  Transmission Date: 20060701
  Serious: Yes (Hospitalization)
  Sender: FDA-Public Use
  Company Number: 2006-BP-00677RO

PATIENT
  Age: 43 Year
  Sex: Female

DRUGS (5)
  1. LITHIUM CARBONATE [Suspect]
     Indication: BIPOLAR DISORDER
     Dosage: 1200 MG DAILY
  2. RISPERIDONE [Suspect]
     Indication: BIPOLAR DISORDER
  3. CARBAMAZEPINE [Suspect]
     Indication: BIPOLAR DISORDER
  4. FUROSEMIDE [Concomitant]
  5. AMILORIDE (AMILORIDE) [Concomitant]

REACTIONS (7)
  - DIARRHOEA [None]
  - HYPERNATRAEMIA [None]
  - NEPHROGENIC DIABETES INSIPIDUS [None]
  - OBSESSIVE-COMPULSIVE DISORDER [None]
  - PAIN IN EXTREMITY [None]
  - PNEUMONIA ASPIRATION [None]
  - SOMNOLENCE [None]
